FAERS Safety Report 17403081 (Version 1)
Quarter: 2020Q1

REPORT INFORMATION
  Report Type: Spontaneous
  Country: GB (occurrence: GB)
  Receive Date: 20200211
  Receipt Date: 20200211
  Transmission Date: 20200409
  Serious: Yes (Hospitalization)
  Sender: FDA-Public Use
  Company Number: GB-MYLANLABS-2020M1014977

PATIENT
  Sex: Female

DRUGS (1)
  1. ENTACAPONE MYLAN 200 MG FILM-COATED TABLETS [Suspect]
     Active Substance: ENTACAPONE
     Indication: PARKINSON^S DISEASE
     Dosage: UNK

REACTIONS (1)
  - Myocardial infarction [Unknown]
